FAERS Safety Report 6681121-X (Version None)
Quarter: 2010Q2

REPORT INFORMATION
  Report Type: 
  Country: None (occurrence: None)
  Receive Date: 20100414
  Receipt Date: 20100407
  Transmission Date: 20101027
  Serious: Yes (Hospitalization)
  Sender: FDA-Public Use
  Company Number: CH-ROCHE-695974

PATIENT
  Age: 75 Year
  Sex: Female

DRUGS (3)
  1. BONIVA [Suspect]
     Indication: OSTEOPOROSIS POSTMENOPAUSAL
     Route: 048
     Dates: start: 20060101, end: 20100101
  2. AREDIA [Suspect]
     Indication: OSTEOPOROSIS POSTMENOPAUSAL
     Route: 041
     Dates: start: 20040101, end: 20060401
  3. ATACAND [Concomitant]
     Indication: ESSENTIAL HYPERTENSION
     Dosage: ONE TABLET (8 MG) EVERY THIRD DAY, TWO TABLETS (16 MG) DAILY FOR THE OTHER TWO DAYS.
     Route: 048

REACTIONS (1)
  - LOWER LIMB FRACTURE [None]
